FAERS Safety Report 14181767 (Version 1)
Quarter: 2017Q4

REPORT INFORMATION
  Report Type: Spontaneous
  Country: US (occurrence: US)
  Receive Date: 20171111
  Receipt Date: 20171111
  Transmission Date: 20180321
  Serious: Yes (Life-Threatening, Hospitalization)
  Sender: FDA-Public Use
  Company Number: None

PATIENT
  Age: 68 Year
  Sex: Male
  Weight: 85.5 kg

DRUGS (5)
  1. LEVOXYL [Concomitant]
     Active Substance: LEVOTHYROXINE SODIUM
  2. CEPHALEXIN GENERIC KEFLEX [Suspect]
     Active Substance: CEPHALEXIN
     Indication: TOOTH EXTRACTION
     Dosage: ?          QUANTITY:40 CAPSULE(S);?
     Route: 048
     Dates: start: 20171107, end: 20171107
  3. LOVASTATIN. [Concomitant]
     Active Substance: LOVASTATIN
  4. CEPHALEXIN GENERIC KEFLEX [Suspect]
     Active Substance: CEPHALEXIN
     Indication: TOOTH ABSCESS
     Dosage: ?          QUANTITY:40 CAPSULE(S);?
     Route: 048
     Dates: start: 20171107, end: 20171107
  5. LINISPOLIN [Concomitant]

REACTIONS (9)
  - Loss of consciousness [None]
  - Road traffic accident [None]
  - Dizziness [None]
  - Lip swelling [None]
  - Renal failure [None]
  - Hepatic enzyme abnormal [None]
  - Pruritus [None]
  - Erythema [None]
  - Haematochezia [None]

NARRATIVE: CASE EVENT DATE: 20171107
